FAERS Safety Report 22123019 (Version 7)
Quarter: 2023Q2

REPORT INFORMATION
  Report Type: Spontaneous
  Country: JP (occurrence: JP)
  Receive Date: 20230322
  Receipt Date: 20230627
  Transmission Date: 20230722
  Serious: Yes (Hospitalization, Other)
  Sender: FDA-Public Use
  Company Number: JP-BAXTER-2023BAX015804

PATIENT
  Age: 49 Year
  Sex: Female
  Weight: 64 kg

DRUGS (9)
  1. DOXORUBICIN [Suspect]
     Active Substance: DOXORUBICIN
     Indication: Triple negative breast cancer
     Dosage: TWICE IN A WEEK
     Route: 042
  2. CYCLOPHOSPHAMIDE [Suspect]
     Active Substance: CYCLOPHOSPHAMIDE
     Indication: Triple negative breast cancer
     Dosage: 1014 MG, ONCE EVERY 2 WEEKS, DOSAGE FORM: INJECTION
     Route: 042
     Dates: start: 20221110
  3. EPIRUBICIN HYDROCHLORIDE [Suspect]
     Active Substance: EPIRUBICIN HYDROCHLORIDE
     Indication: Triple negative breast cancer
     Dosage: 152 MG, ONCE EVERY 2 WEEKS
     Route: 042
     Dates: start: 20221110
  4. ATEZOLIZUMAB [Suspect]
     Active Substance: ATEZOLIZUMAB
     Indication: Triple negative breast cancer
     Dosage: 1200 MG, ONCE EVERY 3 WEEKS (GENETICAL RECOMBINATION)
     Route: 042
     Dates: start: 20220818
  5. PACLITAXEL [Suspect]
     Active Substance: PACLITAXEL
     Indication: Triple negative breast cancer
     Dosage: 135 MG, ONCE IN A WEEK
     Route: 042
     Dates: start: 20220818
  6. PEGFILGRASTIM [Concomitant]
     Active Substance: PEGFILGRASTIM
     Dosage: 3.6 MG, TWICE A WEEK (GENETICAL RECOMBINATION)
     Route: 058
     Dates: start: 20221111, end: 20221111
  7. PEGFILGRASTIM [Concomitant]
     Active Substance: PEGFILGRASTIM
     Dosage: 3.6 MG, TWICE A WEEK
     Route: 058
     Dates: start: 20221125, end: 20221125
  8. PEGFILGRASTIM [Concomitant]
     Active Substance: PEGFILGRASTIM
     Dosage: 3.6 MG, TWICE A WEEK
     Route: 058
     Dates: start: 20221209, end: 20221209
  9. PEGFILGRASTIM [Concomitant]
     Active Substance: PEGFILGRASTIM
     Dosage: 3.6 MG, TWICE A WEEK
     Route: 058
     Dates: start: 20221223, end: 20221223

REACTIONS (6)
  - Hyperthyroidism [Recovered/Resolved]
  - Dyspnoea [Recovered/Resolved]
  - Central hypothyroidism [Unknown]
  - Feeding disorder [Unknown]
  - Thyroiditis [Unknown]
  - Hypoacusis [Recovering/Resolving]

NARRATIVE: CASE EVENT DATE: 20221208
